FAERS Safety Report 7432877-X (Version None)
Quarter: 2011Q2

REPORT INFORMATION
  Report Type: 
  Country: None (occurrence: None)
  Receive Date: 20110422
  Receipt Date: 20110413
  Transmission Date: 20111010
  Serious: Yes (Other)
  Sender: FDA-Public Use
  Company Number: US-ASTRAZENECA-2011SE21064

PATIENT
  Age: 85 Year
  Sex: Male

DRUGS (1)
  1. SEROQUEL [Suspect]
     Indication: DEMENTIA ALZHEIMER'S TYPE
     Route: 048

REACTIONS (2)
  - FAILURE TO THRIVE [None]
  - OFF LABEL USE [None]
